FAERS Safety Report 17864715 (Version 1)
Quarter: 2020Q2

REPORT INFORMATION
  Report Type: Spontaneous
  Country: US (occurrence: US)
  Receive Date: 20200605
  Receipt Date: 20200605
  Transmission Date: 20200714
  Serious: Yes (Other)
  Sender: FDA-Public Use
  Company Number: US-ASTRAZENECA-2020SE71751

PATIENT

DRUGS (3)
  1. FASLODEX [Suspect]
     Active Substance: FULVESTRANT
     Route: 030
  2. IBRANCE [Suspect]
     Active Substance: PALBOCICLIB
     Indication: BREAST CANCER
     Dosage: 100 MG DAILY 21 DAYS ON, OFF 7 DAYS
     Route: 048
     Dates: start: 20200518
  3. XGEVA [Concomitant]
     Active Substance: DENOSUMAB
     Dosage: EVERY 12 WEEKS

REACTIONS (3)
  - Tumour marker increased [Unknown]
  - Neutrophil count increased [Unknown]
  - Alopecia [Unknown]
